FAERS Safety Report 9290121 (Version 1)
Quarter: 2013Q2

REPORT INFORMATION
  Report Type: Spontaneous
  Country: FR (occurrence: FR)
  Receive Date: 20130515
  Receipt Date: 20130515
  Transmission Date: 20140414
  Serious: Yes (Other)
  Sender: FDA-Public Use
  Company Number: FR-ELI_LILLY_AND_COMPANY-FR201305001374

PATIENT
  Age: 49 Year
  Sex: Female

DRUGS (2)
  1. ZYPREXA [Suspect]
     Dosage: 1 DF, QD
     Route: 048
  2. ZYPREXA [Suspect]
     Dosage: 5 MG, QD
     Route: 048

REACTIONS (4)
  - Pancreatic carcinoma [Unknown]
  - Pancreatitis acute [Unknown]
  - Pancreatitis acute [Unknown]
  - Insomnia [Unknown]
